FAERS Safety Report 11094730 (Version 1)
Quarter: 2015Q2

REPORT INFORMATION
  Report Type: Spontaneous
  Country: US (occurrence: US)
  Receive Date: 20150506
  Receipt Date: 20150506
  Transmission Date: 20150821
  Serious: No
  Sender: FDA-Public Use
  Company Number: US-BAYER-2015-185800

PATIENT
  Age: 83 Year
  Sex: Male
  Weight: 84 kg

DRUGS (10)
  1. TAMSULOSIN [Concomitant]
     Active Substance: TAMSULOSIN
  2. IRON [FERROUS SULFATE] [Concomitant]
  3. ASPIRIN (E.C.) [ACETYLSALICYLIC ACID] [Concomitant]
     Active Substance: ASPIRIN
     Dosage: 81 MG, UNK
  4. CLARITIN [Suspect]
     Active Substance: LORATADINE
     Indication: SEASONAL ALLERGY
     Dosage: 1 DF, USED ONLY ONE TIME
     Route: 048
     Dates: start: 20150421
  5. AMLODIPINE [Concomitant]
     Active Substance: AMLODIPINE BESYLATE
  6. LOSARTAN [Concomitant]
     Active Substance: LOSARTAN
  7. SERLAIN [Concomitant]
     Active Substance: SERTRALINE HYDROCHLORIDE
  8. LOVASTATIN. [Concomitant]
     Active Substance: LOVASTATIN
  9. OMEPRAZOLE. [Concomitant]
     Active Substance: OMEPRAZOLE
  10. FINASTERIDE. [Concomitant]
     Active Substance: FINASTERIDE

REACTIONS (1)
  - Dizziness [Recovered/Resolved]

NARRATIVE: CASE EVENT DATE: 20150421
